FAERS Safety Report 6673141-6 (Version None)
Quarter: 2010Q2

REPORT INFORMATION
  Report Type: 
  Country: None (occurrence: None)
  Receive Date: 20100406
  Receipt Date: 20100322
  Transmission Date: 20101027
  Serious: Yes (Hospitalization)
  Sender: FDA-Public Use
  Company Number: AUR-APL-2010-00859

PATIENT
  Age: 19 Month
  Sex: Female

DRUGS (1)
  1. CYCLOBENZAPRINE [Suspect]
     Indication: ACCIDENTAL EXPOSURE

REACTIONS (12)
  - ACCIDENTAL EXPOSURE [None]
  - ACUTE DISSEMINATED ENCEPHALOMYELITIS [None]
  - CLONUS [None]
  - CONSTIPATION [None]
  - DRUG SCREEN POSITIVE [None]
  - GAIT DISTURBANCE [None]
  - MYDRIASIS [None]
  - NYSTAGMUS [None]
  - RESPIRATORY RATE INCREASED [None]
  - SINUS TACHYCARDIA [None]
  - UPPER RESPIRATORY TRACT CONGESTION [None]
  - VOMITING [None]
